FAERS Safety Report 23491036 (Version 1)
Quarter: 2024Q1

REPORT INFORMATION
  Report Type: Spontaneous
  Country: US (occurrence: US)
  Receive Date: 20240206
  Receipt Date: 20240206
  Transmission Date: 20240410
  Serious: Yes (Disabling, Other)
  Sender: FDA-Public Use
  Company Number: US-SA-SAC20240205001271

PATIENT
  Sex: Female

DRUGS (1)
  1. DUPIXENT [Suspect]
     Active Substance: DUPILUMAB
     Indication: Asthma
     Dosage: 300 MG, QOW
     Route: 058

REACTIONS (5)
  - Loss of personal independence in daily activities [Unknown]
  - Atrial fibrillation [Unknown]
  - Atrial flutter [Unknown]
  - Condition aggravated [Unknown]
  - Sleep disorder due to general medical condition, hypersomnia type [Unknown]

NARRATIVE: CASE EVENT DATE: 20230101
